FAERS Safety Report 7536625-4 (Version None)
Quarter: 2011Q2

REPORT INFORMATION
  Report Type: 
  Country: None (occurrence: None)
  Receive Date: 20110609
  Receipt Date: 20110527
  Transmission Date: 20111010
  Serious: Yes (Hospitalization, Disabling)
  Sender: FDA-Public Use
  Company Number: FR-SANOFI-AVENTIS-2010SA066166

PATIENT
  Age: 56 Year
  Sex: Female

DRUGS (16)
  1. BEVACIZUMAB [Suspect]
     Route: 041
     Dates: end: 20090921
  2. XANAX [Concomitant]
     Dates: start: 20100101
  3. OXYCONTIN [Concomitant]
     Dates: start: 20100120, end: 20100808
  4. BEVACIZUMAB [Suspect]
     Route: 041
     Dates: start: 20100809, end: 20100809
  5. CAPECITABINE [Suspect]
     Route: 048
     Dates: start: 20100809, end: 20100823
  6. PAROXETINE HCL [Concomitant]
     Dates: start: 20100101
  7. IRINOTECAN HYDROCHLORIDE [Concomitant]
     Dates: start: 20090608, end: 20090921
  8. LOPERAMIDE HYDROCHLORIDE [Concomitant]
  9. OXALIPLATIN [Suspect]
     Route: 041
     Dates: start: 20100809
  10. BEVACIZUMAB [Suspect]
     Route: 041
     Dates: start: 20090608, end: 20090608
  11. FLUOROURACIL [Concomitant]
     Dates: start: 20090608, end: 20090921
  12. LEUCOVORIN CALCIUM [Concomitant]
     Dates: start: 20090608, end: 20090921
  13. OXALIPLATIN [Suspect]
     Route: 041
     Dates: start: 20100120, end: 20100517
  14. BEVACIZUMAB [Suspect]
     Route: 041
     Dates: start: 20100120, end: 20100719
  15. CAPECITABINE [Suspect]
     Route: 048
     Dates: start: 20100120, end: 20100517
  16. ACETAMINOPHEN [Concomitant]
     Dates: start: 20091125, end: 20100808

REACTIONS (2)
  - CEREBRAL ISCHAEMIA [None]
  - CEREBROVASCULAR ACCIDENT [None]
